FAERS Safety Report 6362084-3 (Version None)
Quarter: 2009Q3

REPORT INFORMATION
  Report Type: 
  Country: None (occurrence: None)
  Receive Date: 20090918
  Receipt Date: 20090914
  Transmission Date: 20100115
  Serious: Yes (Death, Other)
  Sender: FDA-Public Use
  Company Number: PHHY2009JP39520

PATIENT
  Age: 68 Year
  Sex: Female

DRUGS (4)
  1. CYCLOSPORINE [Suspect]
     Indication: DIFFUSE ALVEOLAR DAMAGE
     Dosage: UNK
     Route: 048
  2. METHYLPREDNISOLONE [Concomitant]
  3. PREDNISOLONE [Concomitant]
     Dosage: 20 MG, UNK
  4. TACROLIMUS [Concomitant]

REACTIONS (2)
  - DERMATOMYOSITIS [None]
  - DYSPNOEA [None]
